FAERS Safety Report 5315106-2 (Version None)
Quarter: 2007Q2

REPORT INFORMATION
  Report Type: 
  Country: None (occurrence: None)
  Receive Date: 20070502
  Receipt Date: 20070420
  Transmission Date: 20071010
  Serious: Yes (Death, Other)
  Sender: FDA-Public Use
  Company Number: US-PFIZER INC-2006142620

PATIENT
  Sex: Female
  Weight: 127 kg

DRUGS (1)
  1. CELECOXIB [Suspect]
     Indication: ARTHRITIS
     Route: 048
     Dates: start: 20001104, end: 20011001

REACTIONS (2)
  - CORONARY ARTERY DISEASE [None]
  - MYOCARDIAL INFARCTION [None]
